FAERS Safety Report 14300211 (Version 1)
Quarter: 2017Q4

REPORT INFORMATION
  Report Type: Spontaneous
  Country: US (occurrence: US)
  Receive Date: 20171219
  Receipt Date: 20171219
  Transmission Date: 20180321
  Serious: No
  Sender: FDA-Public Use
  Company Number: US-TEVA-772485ACC

PATIENT
  Sex: Female

DRUGS (4)
  1. AZITHROMYCIN ANHYDROUS. [Suspect]
     Active Substance: AZITHROMYCIN ANHYDROUS
     Indication: SINUSITIS
     Dates: start: 20170520
  2. AMBIEN [Concomitant]
     Active Substance: ZOLPIDEM TARTRATE
  3. KLONOPIN [Concomitant]
     Active Substance: CLONAZEPAM
  4. TRAMADOL. [Concomitant]
     Active Substance: TRAMADOL

REACTIONS (4)
  - Fatigue [Recovered/Resolved]
  - Pain in extremity [Unknown]
  - Dizziness [Unknown]
  - Somnolence [Unknown]

NARRATIVE: CASE EVENT DATE: 20170520
